FAERS Safety Report 19828978 (Version 1)
Quarter: 2021Q3

REPORT INFORMATION
  Report Type: Spontaneous
  Country: US (occurrence: US)
  Receive Date: 20210914
  Receipt Date: 20210914
  Transmission Date: 20211014
  Serious: No
  Sender: FDA-Public Use
  Company Number: US-ALKERMES INC.-ALK-2021-004707

PATIENT
  Sex: Male

DRUGS (3)
  1. VIVITROL [Suspect]
     Active Substance: NALTREXONE
     Indication: PRODUCT USED FOR UNKNOWN INDICATION
     Dosage: 370 MILLIGRAM, QMO
     Route: 030
     Dates: start: 20210907
  2. VACCINES [Concomitant]
     Active Substance: UNSPECIFIED INGREDIENT
     Indication: PROPHYLAXIS
     Dosage: UNK
     Route: 065
  3. VIVITROL [Suspect]
     Active Substance: NALTREXONE
     Dosage: 380 MILLIGRAM, QMO
     Route: 030

REACTIONS (5)
  - Injection site reaction [Unknown]
  - Needle issue [Recovered/Resolved]
  - Injection site mass [Unknown]
  - Injection site induration [Unknown]
  - Injection site bruising [Unknown]

NARRATIVE: CASE EVENT DATE: 202109
